FAERS Safety Report 14604888 (Version 6)
Quarter: 2019Q3

REPORT INFORMATION
  Report Type: Spontaneous
  Country: US (occurrence: US)
  Receive Date: 20180306
  Receipt Date: 20190820
  Transmission Date: 20191004
  Serious: Yes (Other)
  Sender: FDA-Public Use
  Company Number: US-PFIZER INC-2018084655

PATIENT
  Age: 61 Year
  Sex: Female
  Weight: 75 kg

DRUGS (16)
  1. WELLBUTRIN [Concomitant]
     Active Substance: BUPROPION HYDROCHLORIDE
     Indication: DEPRESSION
     Dosage: 150 MG, 1X/DAY
  2. AMLODIPINE [Concomitant]
     Active Substance: AMLODIPINE BESYLATE
     Indication: HYPERTENSION
     Dosage: 10 MG, DAILY
     Route: 048
     Dates: start: 201810
  3. TRAZODONE [Concomitant]
     Active Substance: TRAZODONE HYDROCHLORIDE
     Indication: ANXIETY
     Dosage: 50 MG, 1X/DAY (AT BEDTIME, CAN BE REPEATED ONE TIME IF NEEDED TO HELP SLEEP)
     Route: 048
     Dates: start: 2016
  4. LYRICA [Suspect]
     Active Substance: PREGABALIN
     Indication: SEIZURE
  5. IBUPROFEN. [Concomitant]
     Active Substance: IBUPROFEN
     Indication: BACK PAIN
     Dosage: 800 MG, UNK
  6. OXYCODONE [Concomitant]
     Active Substance: OXYCODONE
     Indication: PAIN
     Dosage: 7.5 MG, AS NEEDED(3 TIMES DAILY AS NEEDED)
  7. DULOXETINE. [Concomitant]
     Active Substance: DULOXETINE
     Indication: ANXIETY
     Dosage: 60 MG, 1X/DAY
     Route: 048
  8. PERCOCET [Concomitant]
     Active Substance: ACETAMINOPHEN\OXYCODONE HYDROCHLORIDE
     Indication: PAIN
     Dosage: 7.5 MG, AS NEEDED (7.5 MG BY MOUTH EVERY 6 HOURS AS NEEDED)
     Route: 048
     Dates: start: 2004
  9. LYRICA [Suspect]
     Active Substance: PREGABALIN
     Indication: NEURALGIA
     Dosage: 100 MG, 3X/DAY
     Route: 048
     Dates: start: 201702
  10. TRAZODONE [Concomitant]
     Active Substance: TRAZODONE HYDROCHLORIDE
     Indication: SLEEP DISORDER
  11. LYRICA [Suspect]
     Active Substance: PREGABALIN
     Indication: EPILEPSY
  12. NORTRIPTYLINE [Concomitant]
     Active Substance: NORTRIPTYLINE
     Indication: SLEEP DISORDER
     Dosage: UNK
  13. ALBUTEROL [SALBUTAMOL] [Concomitant]
     Active Substance: ALBUTEROL
     Indication: WHEEZING
     Dosage: 2.5 MG, AS NEEDED (2.5 MG IN 3 CC SOLUTION EVERY 6 HOURS AS NEEDED)
  14. ALBUTEROL [SALBUTAMOL] [Concomitant]
     Active Substance: ALBUTEROL
     Dosage: 90 UG, AS NEEDED (90 MCG PER PUFF; 2 PUFFS EVERY 4 HOURS AS NEEDED)
  15. BEVESPI AEROSPHERE [Concomitant]
     Active Substance: FORMOTEROL FUMARATE\GLYCOPYRROLATE
     Indication: CHRONIC OBSTRUCTIVE PULMONARY DISEASE
     Dosage: UNK UNK, 2X/DAY (9-4.8MCG PER INHALATION. 2 PUFFS TWO TIMES A DAY)
     Dates: start: 201810
  16. BUPROPION HYDROCHLORIDE XL [Concomitant]
     Active Substance: BUPROPION HYDROCHLORIDE
     Indication: DEPRESSION
     Dosage: 150 MG, 1X/DAY
     Route: 048

REACTIONS (16)
  - Rash [Not Recovered/Not Resolved]
  - Dyspnoea [Unknown]
  - Amnesia [Unknown]
  - Cold sweat [Recovering/Resolving]
  - Formication [Unknown]
  - Feeling abnormal [Unknown]
  - Depression [Unknown]
  - Pruritus generalised [Recovered/Resolved]
  - Withdrawal syndrome [Unknown]
  - Headache [Unknown]
  - Personality disorder [Unknown]
  - Pruritus [Unknown]
  - Palpitations [Recovering/Resolving]
  - Thinking abnormal [Unknown]
  - Hyperhidrosis [Unknown]
  - Anxiety [Unknown]

NARRATIVE: CASE EVENT DATE: 2018
